FAERS Safety Report 4790143-5 (Version None)
Quarter: 2005Q4

REPORT INFORMATION
  Report Type: 
  Country: None (occurrence: None)
  Receive Date: 20051006
  Receipt Date: 20050914
  Transmission Date: 20060501
  Serious: Yes (Other)
  Sender: FDA-Public Use
  Company Number: PHBS2005JP13522

PATIENT
  Age: 66 Year
  Sex: Male

DRUGS (2)
  1. GLEEVEC [Suspect]
     Indication: CHRONIC MYELOID LEUKAEMIA
     Dosage: 600 MG/D
     Route: 048
     Dates: start: 20050101, end: 20050101
  2. GLEEVEC [Suspect]
     Dosage: 400 MG/D
     Route: 048
     Dates: start: 20050101

REACTIONS (6)
  - DISSEMINATED INTRAVASCULAR COAGULATION [None]
  - HYPERURICAEMIA [None]
  - LIVER DISORDER [None]
  - OEDEMA [None]
  - RENAL IMPAIRMENT [None]
  - TUMOUR LYSIS SYNDROME [None]
